FAERS Safety Report 14054762 (Version 2)
Quarter: 2017Q4

REPORT INFORMATION
  Report Type: Spontaneous
  Country: US (occurrence: US)
  Receive Date: 20171006
  Receipt Date: 20171201
  Transmission Date: 20180321
  Serious: No
  Sender: FDA-Public Use
  Company Number: PHHY2017US145041

PATIENT
  Age: 72 Year
  Sex: Female

DRUGS (1)
  1. ZADITOR [Suspect]
     Active Substance: KETOTIFEN FUMARATE
     Indication: PRODUCT USED FOR UNKNOWN INDICATION
     Dosage: UNK
     Route: 047
     Dates: start: 20170921, end: 20170924

REACTIONS (3)
  - Condition aggravated [Recovered/Resolved]
  - Lacrimation increased [Recovered/Resolved]
  - Eye pruritus [Recovered/Resolved]

NARRATIVE: CASE EVENT DATE: 20170923
